FAERS Safety Report 6694884-4 (Version None)
Quarter: 2010Q2

REPORT INFORMATION
  Report Type: 
  Country: None (occurrence: None)
  Receive Date: 20100420
  Receipt Date: 20100408
  Transmission Date: 20101027
  Serious: Yes (Other)
  Sender: FDA-Public Use
  Company Number: 559968

PATIENT
  Sex: Male

DRUGS (2)
  1. (PHENOBARBITAL) [Suspect]
  2. MIDAZOLAM HCL [Suspect]

REACTIONS (5)
  - ABNORMAL BEHAVIOUR [None]
  - AGGRESSION [None]
  - DRUG EFFECT DECREASED [None]
  - PRODUCT TAMPERING [None]
  - WITHDRAWAL SYNDROME [None]
